FAERS Safety Report 11072464 (Version 1)
Quarter: 2015Q2

REPORT INFORMATION
  Report Type: Spontaneous
  Country: US (occurrence: None)
  Receive Date: 20150427
  Receipt Date: 20150427
  Transmission Date: 20150821
  Serious: Yes (Life-Threatening, Hospitalization, Disabling, Other)
  Sender: FDA-Public Use
  Company Number: None

PATIENT
  Age: 73 Year
  Sex: Female
  Weight: 72.58 kg

DRUGS (3)
  1. METHOTREXATE [Suspect]
     Active Substance: METHOTREXATE
     Indication: RHEUMATOID ARTHRITIS
     Dosage: INJECTION INTRAMUSCULAR Q 90 DAYS INTO THE MUSCLE
     Route: 030
  2. NEUROTON [Concomitant]
  3. PROVAL [Concomitant]

REACTIONS (2)
  - Cerebrovascular accident [None]
  - Injection site pain [None]

NARRATIVE: CASE EVENT DATE: 20141030
